FAERS Safety Report 10932145 (Version 2)
Quarter: 2015Q1

REPORT INFORMATION
  Report Type: Spontaneous
  Country: US (occurrence: None)
  Receive Date: 20150212
  Receipt Date: 20150212
  Transmission Date: 20150721
  Serious: No
  Sender: FDA-Public Use
  Company Number: TPA2011A01857

PATIENT
  Age: 86 Year
  Sex: Female
  Weight: 73.94 kg

DRUGS (6)
  1. ULORIC [Suspect]
     Active Substance: FEBUXOSTAT
     Indication: GOUT
     Route: 048
     Dates: start: 201102
  2. WARFARIN [Concomitant]
     Active Substance: WARFARIN
  3. COLCHICINE. [Concomitant]
     Active Substance: COLCHICINE
  4. CARVEDILOL. [Concomitant]
     Active Substance: CARVEDILOL
  5. LISINOPRIL. [Concomitant]
     Active Substance: LISINOPRIL
  6. FUROSEMIDE. [Concomitant]
     Active Substance: FUROSEMIDE

REACTIONS (3)
  - Oedema peripheral [None]
  - Weight decreased [None]
  - Gout [None]

NARRATIVE: CASE EVENT DATE: 2011
